FAERS Safety Report 5925706-4 (Version None)
Quarter: 2008Q4

REPORT INFORMATION
  Report Type: 
  Country: None (occurrence: None)
  Receive Date: 20081021
  Receipt Date: 20081017
  Transmission Date: 20090506
  Serious: Yes (Disabling)
  Sender: FDA-Public Use
  Company Number: GB-ASTRAZENECA-2008GB01987

PATIENT
  Age: 40 Year
  Sex: Female

DRUGS (8)
  1. QUETIAPINE FUMARATE [Suspect]
     Indication: DEPRESSION
     Dosage: 25 UG
     Route: 048
     Dates: start: 20080725, end: 20080901
  2. QUETIAPINE FUMARATE [Suspect]
     Indication: PARANOIA
     Dosage: 25 UG
     Route: 048
     Dates: start: 20080725, end: 20080901
  3. QUETIAPINE FUMARATE [Suspect]
     Dosage: 25 UG
     Route: 048
  4. QUETIAPINE FUMARATE [Suspect]
     Dosage: 25 UG
     Route: 048
  5. AMITRIPTYLINE HCL [Concomitant]
     Indication: DEPRESSION
     Dosage: 150 MG
     Dates: start: 20061129
  6. AMITRIPTYLINE HCL [Concomitant]
     Indication: INSOMNIA
     Dosage: 150 MG
     Dates: start: 20061129
  7. DAPSONE [Concomitant]
     Indication: SWEAT GLAND INFECTION
     Route: 048
     Dates: start: 20080711
  8. TOPIRAMATE [Concomitant]
     Indication: MOOD SWINGS
     Route: 048
     Dates: start: 20080409

REACTIONS (1)
  - ENURESIS [None]
